FAERS Safety Report 4331005-7 (Version None)
Quarter: 2004Q1

REPORT INFORMATION
  Report Type: 
  Country: None (occurrence: None)
  Receive Date: 20040331
  Receipt Date: 20040317
  Transmission Date: 20041129
  Serious: Yes (Disabling, Other)
  Sender: FDA-Public Use
  Company Number: 2004014973

PATIENT
  Sex: Female

DRUGS (7)
  1. ZOLOFT [Suspect]
     Indication: ILL-DEFINED DISORDER
  2. CELECOXIB (CELECOXIB) [Suspect]
     Indication: ILL-DEFINED DISORDER
  3. NEURONTIN [Suspect]
     Indication: ILL-DEFINED DISORDER
  4. LIPITOR [Suspect]
     Indication: ILL-DEFINED DISORDER
  5. ZYRTEC [Suspect]
     Indication: ILL-DEFINED DISORDER
  6. GLUCOTROL [Suspect]
     Indication: ILL-DEFINED DISORDER
  7. VALDECOXIB [Concomitant]

REACTIONS (7)
  - COMA [None]
  - DYSGRAPHIA [None]
  - GANGRENE [None]
  - MENTAL IMPAIRMENT [None]
  - POST PROCEDURAL COMPLICATION [None]
  - READING DISORDER [None]
  - UMBILICAL HERNIA [None]
